FAERS Safety Report 23679698 (Version 1)
Quarter: 2024Q1

REPORT INFORMATION
  Report Type: Spontaneous
  Country: GR (occurrence: GR)
  Receive Date: 20240327
  Receipt Date: 20240327
  Transmission Date: 20240409
  Serious: Yes (Other)
  Sender: FDA-Public Use
  Company Number: GR-SUN PHARMACEUTICAL INDUSTRIES LTD-2024R1-438492

PATIENT
  Age: 67 Year
  Sex: Male

DRUGS (1)
  1. CINACALCET [Suspect]
     Active Substance: CINACALCET
     Indication: Hypervolaemia
     Dosage: 60 MILLIGRAM, DAILY
     Route: 048

REACTIONS (1)
  - Condition aggravated [Unknown]
